FAERS Safety Report 14935086 (Version 2)
Quarter: 2018Q2

REPORT INFORMATION
  Report Type: Report from Study
  Country: CA (occurrence: CA)
  Receive Date: 20180524
  Receipt Date: 20180622
  Transmission Date: 20180711
  Serious: Yes (Disabling)
  Sender: FDA-Public Use
  Company Number: CA-APOPHARMA INC-2018AP013664

PATIENT
  Age: 54 Year
  Sex: Male
  Weight: 73 kg

DRUGS (1)
  1. FERRIPROX [Suspect]
     Active Substance: DEFERIPRONE
     Indication: SUPERFICIAL SIDEROSIS OF CENTRAL NERVOUS SYSTEM
     Dosage: 21 MG/KG, QD
     Route: 048
     Dates: start: 20150925

REACTIONS (3)
  - Asthenia [Recovering/Resolving]
  - Mobility decreased [Recovering/Resolving]
  - Pre-existing condition improved [Recovering/Resolving]

NARRATIVE: CASE EVENT DATE: 20150925
